FAERS Safety Report 11914575 (Version 9)
Quarter: 2016Q4

REPORT INFORMATION
  Report Type: Report from Study
  Country: US (occurrence: US)
  Receive Date: 20160113
  Receipt Date: 20161221
  Transmission Date: 20170206
  Serious: Yes (Hospitalization, Other)
  Sender: FDA-Public Use
  Company Number: US-BAYER-2016-002676

PATIENT
  Age: 62 Year
  Sex: Male
  Weight: 82.54 kg

DRUGS (10)
  1. ADEMPAS [Suspect]
     Active Substance: RIOCIGUAT
     Indication: PULMONARY ARTERIAL HYPERTENSION
     Dosage: 2.5 MG, TID
     Route: 048
  2. ADEMPAS [Suspect]
     Active Substance: RIOCIGUAT
     Indication: PULMONARY ARTERIAL HYPERTENSION
     Dosage: UNK
  3. VELETRI [Suspect]
     Active Substance: EPOPROSTENOL
     Dosage: 6 NG, UNK
  4. VENTAVIS [Suspect]
     Active Substance: ILOPROST
     Dosage: UNK
     Route: 055
     Dates: start: 20160331
  5. ADEMPAS [Suspect]
     Active Substance: RIOCIGUAT
     Indication: PULMONARY ARTERIAL HYPERTENSION
     Dosage: 1.5 MG, TID
     Route: 048
  6. OXYGEN. [Concomitant]
     Active Substance: OXYGEN
  7. ADEMPAS [Suspect]
     Active Substance: RIOCIGUAT
     Indication: PULMONARY ARTERIAL HYPERTENSION
     Dosage: UNK
     Dates: start: 20150922
  8. ADEMPAS [Suspect]
     Active Substance: RIOCIGUAT
     Indication: PULMONARY ARTERIAL HYPERTENSION
     Dosage: 2 MG, TID (LAST SHIPPED 18-JAN-2016)
     Route: 048
  9. VELETRI [Suspect]
     Active Substance: EPOPROSTENOL
     Dosage: UNK
  10. ADEMPAS [Suspect]
     Active Substance: RIOCIGUAT
     Indication: PULMONARY ARTERIAL HYPERTENSION
     Dosage: 2.5 MG, TID
     Route: 048

REACTIONS (27)
  - Epistaxis [Recovering/Resolving]
  - Intestinal haemorrhage [Recovering/Resolving]
  - Headache [Recovered/Resolved]
  - Nausea [Recovered/Resolved]
  - Pleural effusion [None]
  - Renal failure [Unknown]
  - Anaemia [Recovering/Resolving]
  - Retching [Recovering/Resolving]
  - Paralysis [Unknown]
  - Renal failure [Unknown]
  - Wound haemorrhage [Recovering/Resolving]
  - Catheter site haemorrhage [Unknown]
  - Haemorrhage [Recovering/Resolving]
  - Rash [Recovering/Resolving]
  - Impaired healing [Recovering/Resolving]
  - Diarrhoea [Recovering/Resolving]
  - Epistaxis [Recovering/Resolving]
  - Pneumonia [Unknown]
  - Petechiae [Recovering/Resolving]
  - Tremor [Unknown]
  - Muscular weakness [Unknown]
  - Vomiting [Recovering/Resolving]
  - Joint swelling [Unknown]
  - Hospitalisation [None]
  - Blood blister [Recovering/Resolving]
  - Epistaxis [Unknown]
  - Fluid retention [Recovering/Resolving]

NARRATIVE: CASE EVENT DATE: 201601
